FAERS Safety Report 7290601-8 (Version None)
Quarter: 2011Q1

REPORT INFORMATION
  Report Type: 
  Country: None (occurrence: None)
  Receive Date: 20110214
  Receipt Date: 20110209
  Transmission Date: 20110831
  Serious: Yes (Death, Hospitalization)
  Sender: FDA-Public Use
  Company Number: DE-SANOFI-AVENTIS-2011SA004850

PATIENT
  Age: 81 Year
  Sex: Female
  Weight: 53 kg

DRUGS (13)
  1. EMBOLEX [Concomitant]
     Route: 058
     Dates: start: 20100901
  2. THOMAPYRIN [Concomitant]
     Indication: HEADACHE
     Route: 065
  3. PANTOPRAZOLE [Concomitant]
     Route: 065
     Dates: start: 20100901, end: 20101001
  4. AMPHOTERICIN B [Concomitant]
     Route: 065
     Dates: start: 20100901
  5. PANTOPRAZOLE [Concomitant]
     Route: 065
     Dates: end: 20100901
  6. ALLOPURINOL [Concomitant]
     Route: 065
  7. ACETYLSALICYLIC ACID [Concomitant]
     Route: 065
     Dates: end: 20100901
  8. MULTAQ [Suspect]
     Route: 048
     Dates: start: 20100316, end: 20100901
  9. PANTOPRAZOLE [Concomitant]
     Route: 065
     Dates: start: 20100901, end: 20100901
  10. RAMIPRIL [Concomitant]
     Route: 065
  11. SIMVASTATIN [Concomitant]
     Route: 065
  12. RANOLAZINE [Concomitant]
     Route: 065
     Dates: start: 20100901
  13. KALINOR [Concomitant]
     Route: 065
     Dates: start: 20100901

REACTIONS (10)
  - WEIGHT DECREASED [None]
  - THROMBOCYTOPENIA [None]
  - AGRANULOCYTOSIS [None]
  - DYSPNOEA [None]
  - PYREXIA [None]
  - APLASTIC ANAEMIA [None]
  - PNEUMONIA [None]
  - ANAEMIA [None]
  - EXERCISE TOLERANCE DECREASED [None]
  - HAEMATOMA [None]
